FAERS Safety Report 17933094 (Version 1)
Quarter: 2020Q2

REPORT INFORMATION
  Report Type: Spontaneous
  Country: DE (occurrence: DE)
  Receive Date: 20200623
  Receipt Date: 20200623
  Transmission Date: 20200714
  Serious: Yes (Hospitalization)
  Sender: FDA-Public Use
  Company Number: NVSC2020DE175037

PATIENT
  Weight: 45.1 kg

DRUGS (1)
  1. KYMRIAH [Suspect]
     Active Substance: TISAGENLECLEUCEL
     Indication: DIFFUSE LARGE B-CELL LYMPHOMA RECURRENT
     Dosage: UNK
     Route: 042
     Dates: start: 20200528

REACTIONS (5)
  - Sudden cardiac death [Recovered/Resolved]
  - Immune effector cell-associated neurotoxicity syndrome [Recovered/Resolved]
  - Erythema multiforme [Recovered/Resolved]
  - Rash maculo-papular [Recovered/Resolved]
  - Cytokine release syndrome [Recovered/Resolved]
